FAERS Safety Report 6105467-9 (Version None)
Quarter: 2009Q1

REPORT INFORMATION
  Report Type: 
  Country: None (occurrence: None)
  Receive Date: 20090306
  Receipt Date: 20090227
  Transmission Date: 20090719
  Serious: Yes (Hospitalization)
  Sender: FDA-Public Use
  Company Number: A0769353A

PATIENT
  Age: 65 Year
  Sex: Female
  Weight: 81.8 kg

DRUGS (3)
  1. AVANDARYL [Suspect]
     Route: 048
     Dates: start: 20060601, end: 20061030
  2. AVANDIA [Suspect]
     Dosage: 4MG UNKNOWN
     Route: 065
     Dates: start: 20070302, end: 20070512
  3. LISINOPRIL [Concomitant]

REACTIONS (3)
  - CARDIAC FAILURE CONGESTIVE [None]
  - CARDIOVASCULAR DISORDER [None]
  - MYOCARDIAL INFARCTION [None]
